FAERS Safety Report 6958118-5 (Version None)
Quarter: 2010Q3

REPORT INFORMATION
  Report Type: 
  Country: None (occurrence: None)
  Receive Date: 20100831
  Receipt Date: 20100820
  Transmission Date: 20110219
  Serious: Yes (Death)
  Sender: FDA-Public Use
  Company Number: IN-ELI_LILLY_AND_COMPANY-IN200908005830

PATIENT
  Sex: Male
  Weight: 56 kg

DRUGS (4)
  1. PEMETREXED [Suspect]
     Indication: NON-SMALL CELL LUNG CANCER
     Dosage: 500 MG/M2, ON D1 CYCLICAL
     Route: 042
     Dates: start: 20090721
  2. FOLIC ACID [Concomitant]
     Indication: SUPPLEMENTATION THERAPY
  3. VITAMIN B-12 [Concomitant]
     Indication: SUPPLEMENTATION THERAPY
     Dates: start: 20090714
  4. AMLODIPINE [Concomitant]
     Indication: HYPERTENSION
     Dosage: 0.5 MG, UNKNOWN
     Dates: start: 20060101

REACTIONS (1)
  - DEATH [None]
